FAERS Safety Report 16443265 (Version 2)
Quarter: 2019Q3

REPORT INFORMATION
  Report Type: Report from Study
  Country: None (occurrence: CL)
  Receive Date: 20190618
  Receipt Date: 20190723
  Transmission Date: 20191004
  Serious: Yes (Other)
  Sender: FDA-Public Use
  Company Number: CL-ABBVIE-19K-034-2746812-00

PATIENT
  Age: 66 Year
  Sex: Female

DRUGS (3)
  1. MEDROL [Concomitant]
     Active Substance: METHYLPREDNISOLONE
     Indication: PRODUCT USED FOR UNKNOWN INDICATION
  2. LEFLUNOMIDE. [Concomitant]
     Active Substance: LEFLUNOMIDE
     Indication: RHEUMATOID ARTHRITIS
     Route: 065
  3. HUMIRA [Suspect]
     Active Substance: ADALIMUMAB
     Indication: RHEUMATOID ARTHRITIS
     Route: 058
     Dates: start: 20170905, end: 201905

REACTIONS (9)
  - Gastrooesophageal reflux disease [Unknown]
  - Dyspepsia [Unknown]
  - Bile duct obstruction [Not Recovered/Not Resolved]
  - Fat intolerance [Unknown]
  - Oesophagitis [Unknown]
  - Gastritis [Not Recovered/Not Resolved]
  - Defaecation urgency [Unknown]
  - Biliary tract disorder [Not Recovered/Not Resolved]
  - Nausea [Unknown]

NARRATIVE: CASE EVENT DATE: 201903
